FAERS Safety Report 8395200-2 (Version None)
Quarter: 2012Q2

REPORT INFORMATION
  Report Type: 
  Country: None (occurrence: None)
  Receive Date: 20120530
  Receipt Date: 20120521
  Transmission Date: 20120825
  Serious: Yes (Other)
  Sender: FDA-Public Use
  Company Number: US-JNJFOC-20111005776

PATIENT
  Sex: Female

DRUGS (1)
  1. LEVAQUIN [Suspect]
     Indication: DIVERTICULITIS
     Route: 048
     Dates: start: 20080801

REACTIONS (4)
  - TENOSYNOVITIS [None]
  - TENDONITIS [None]
  - PLANTAR FASCIITIS [None]
  - TENDON RUPTURE [None]
